FAERS Safety Report 7190965-X (Version None)
Quarter: 2010Q4

REPORT INFORMATION
  Report Type: 
  Country: None (occurrence: None)
  Receive Date: 20101223
  Receipt Date: 20100808
  Transmission Date: 20110411
  Serious: No
  Sender: FDA-Public Use
  Company Number: US-AMGEN-TCS429706

PATIENT

DRUGS (2)
  1. ENBREL [Suspect]
     Indication: PSORIATIC ARTHROPATHY
     Dosage: 50 MG, QWK
     Route: 058
     Dates: start: 20100423
  2. ENBREL [Suspect]
     Indication: PSORIASIS

REACTIONS (13)
  - DRY EYE [None]
  - EYE PAIN [None]
  - EYE PRURITUS [None]
  - EYE SWELLING [None]
  - EYELID OEDEMA [None]
  - HEADACHE [None]
  - HEMICEPHALALGIA [None]
  - INJECTION SITE ERYTHEMA [None]
  - INJECTION SITE PAIN [None]
  - INJECTION SITE SWELLING [None]
  - INSOMNIA [None]
  - PAIN IN EXTREMITY [None]
  - VISION BLURRED [None]
